FAERS Safety Report 4646092-6 (Version None)
Quarter: 2005Q2

REPORT INFORMATION
  Report Type: 
  Country: None (occurrence: None)
  Receive Date: 20050427
  Receipt Date: 20040928
  Transmission Date: 20051028
  Serious: No
  Sender: FDA-Public Use
  Company Number: US-GLAXOSMITHKLINE-A0527576A

PATIENT

DRUGS (1)
  1. ZOFRAN [Suspect]
     Route: 042
     Dates: start: 20040927

REACTIONS (1)
  - DRUG INEFFECTIVE [None]
